FAERS Safety Report 5013832-6 (Version None)
Quarter: 2006Q2

REPORT INFORMATION
  Report Type: 
  Country: None (occurrence: None)
  Receive Date: 20060530
  Receipt Date: 20060518
  Transmission Date: 20061013
  Serious: Yes (Hospitalization)
  Sender: FDA-Public Use
  Company Number: US-ROCHE-448881

PATIENT
  Age: 49 Year
  Sex: Male

DRUGS (4)
  1. FUZEON [Suspect]
     Dosage: ROUTE REPORTED AS INJECTABLE.
     Route: 050
     Dates: start: 20050812, end: 20060515
  2. FUZEON [Suspect]
     Route: 050
     Dates: start: 20060518
  3. STEROIDS NOS [Concomitant]
  4. COMBIVIR [Concomitant]

REACTIONS (1)
  - CAT SCRATCH DISEASE [None]
